FAERS Safety Report 5708599-X (Version None)
Quarter: 2008Q2

REPORT INFORMATION
  Report Type: 
  Country: None (occurrence: None)
  Receive Date: 20080417
  Receipt Date: 20080402
  Transmission Date: 20081010
  Serious: Yes (Hospitalization)
  Sender: FDA-Public Use
  Company Number: FR-GENENTECH-259063

PATIENT
  Age: 74 Year
  Sex: Male

DRUGS (1)
  1. AVASTIN [Suspect]
     Indication: COLON CANCER
     Route: 042
     Dates: start: 20070401

REACTIONS (3)
  - FATIGUE [None]
  - HEPATIC STEATOSIS [None]
  - POSTOPERATIVE FEVER [None]
